FAERS Safety Report 16362043 (Version 1)
Quarter: 2019Q2

REPORT INFORMATION
  Report Type: Spontaneous
  Country: US (occurrence: US)
  Receive Date: 20190420
  Receipt Date: 20190420
  Transmission Date: 20190711
  Serious: No
  Sender: FDA-Public Use
  Company Number: None

PATIENT
  Age: 65 Year
  Sex: Female

DRUGS (4)
  1. KEPPRA [Concomitant]
     Active Substance: LEVETIRACETAM
  2. CAPECITABINE TAB 150 MG [Suspect]
     Active Substance: CAPECITABINE
     Dosage: ?          OTHER DOSE:3 TABLETS;?
     Route: 048
     Dates: start: 20180510
  3. CIPRO [Concomitant]
     Active Substance: CIPROFLOXACIN HYDROCHLORIDE
  4. CLARITIN [Concomitant]
     Active Substance: LORATADINE

REACTIONS (3)
  - Seasonal allergy [None]
  - Rhinorrhoea [None]
  - Infection [None]

NARRATIVE: CASE EVENT DATE: 20190413
